FAERS Safety Report 15259387 (Version 2)
Quarter: 2018Q3

REPORT INFORMATION
  Report Type: Spontaneous
  Country: SE (occurrence: SE)
  Receive Date: 20180809
  Receipt Date: 20180813
  Transmission Date: 20181010
  Serious: Yes (Other)
  Sender: FDA-Public Use
  Company Number: SE-JNJFOC-20180806713

PATIENT
  Age: 37 Year
  Sex: Female

DRUGS (8)
  1. PENTASA [Concomitant]
     Active Substance: MESALAMINE
     Route: 054
     Dates: start: 2016
  2. OMEPRAZOLE. [Concomitant]
     Active Substance: OMEPRAZOLE
     Route: 065
     Dates: start: 2015
  3. OLANZAPINE. [Concomitant]
     Active Substance: OLANZAPINE
     Route: 065
     Dates: start: 2017
  4. COLIFOAM [Concomitant]
     Active Substance: HYDROCORTISONE
     Route: 054
     Dates: start: 2016
  5. PREDNISOLONE. [Concomitant]
     Active Substance: PREDNISOLONE
     Route: 065
     Dates: start: 2016
  6. REMICADE [Suspect]
     Active Substance: INFLIXIMAB
     Indication: COLITIS ULCERATIVE
     Route: 042
     Dates: start: 201705
  7. MIRTAZAPINE. [Concomitant]
     Active Substance: MIRTAZAPINE
     Route: 065
     Dates: start: 2018
  8. ASACOL [Concomitant]
     Active Substance: MESALAMINE
     Route: 065
     Dates: start: 2016

REACTIONS (1)
  - Alopecia [Not Recovered/Not Resolved]

NARRATIVE: CASE EVENT DATE: 2017
